FAERS Safety Report 18579916 (Version 2)
Quarter: 2021Q1

REPORT INFORMATION
  Report Type: Spontaneous
  Country: US (occurrence: US)
  Receive Date: 20201204
  Receipt Date: 20210212
  Transmission Date: 20210419
  Serious: No
  Sender: FDA-Public Use
  Company Number: US-ASTRAZENECA-2020SF51905

PATIENT
  Age: 22936 Day
  Sex: Female
  Weight: 113.4 kg

DRUGS (1)
  1. BYDUREON BCISE [Suspect]
     Active Substance: EXENATIDE
     Indication: TYPE 2 DIABETES MELLITUS
     Route: 058
     Dates: start: 2018

REACTIONS (4)
  - Device use error [Unknown]
  - Incorrect dose administered by device [Unknown]
  - Device defective [Unknown]
  - Device leakage [Unknown]

NARRATIVE: CASE EVENT DATE: 20191223
